FAERS Safety Report 7601721-X (Version None)
Quarter: 2011Q2

REPORT INFORMATION
  Report Type: 
  Country: None (occurrence: None)
  Receive Date: 20110630
  Receipt Date: 20110620
  Transmission Date: 20111010
  Serious: Yes (Other)
  Sender: FDA-Public Use
  Company Number: 2011001828

PATIENT
  Age: 61 Year
  Sex: Male
  Weight: 79 kg

DRUGS (2)
  1. TARCEVA [Suspect]
     Indication: NON-SMALL CELL LUNG CANCER STAGE IV
     Dosage: 150 UID/QD, ORAL, 100 MG, UID/QD, ORAL
     Route: 048
     Dates: start: 20110401
  2. TARCEVA [Suspect]
     Indication: NON-SMALL CELL LUNG CANCER STAGE IV
     Dosage: 150 UID/QD, ORAL, 100 MG, UID/QD, ORAL
     Route: 048
     Dates: start: 20110301

REACTIONS (3)
  - NASOPHARYNGITIS [None]
  - HERNIA [None]
  - DERMATITIS ACNEIFORM [None]
